FAERS Safety Report 11617532 (Version 1)
Quarter: 2015Q4

REPORT INFORMATION
  Report Type: Spontaneous
  Country: FR (occurrence: FR)
  Receive Date: 20151009
  Receipt Date: 20151009
  Transmission Date: 20160304
  Serious: Yes (Hospitalization)
  Sender: FDA-Public Use
  Company Number: FR-ABBVIE-15P-056-1479048-00

PATIENT
  Age: 63 Year
  Sex: Female

DRUGS (3)
  1. RISPERDAL [Suspect]
     Active Substance: RISPERIDONE
     Indication: TOXICITY TO VARIOUS AGENTS
     Route: 048
     Dates: start: 20150821, end: 20150821
  2. DEPAKINE [Suspect]
     Active Substance: VALPROATE SODIUM
     Indication: TOXICITY TO VARIOUS AGENTS
     Dosage: 40 DOSAGE FORM;ONCE
     Route: 048
     Dates: start: 20150821, end: 20150821
  3. COVERAM [Suspect]
     Active Substance: AMLODIPINE\PERINDOPRIL
     Indication: TOXICITY TO VARIOUS AGENTS
     Dosage: 60 DOSAGE FORM;ONCE
     Route: 048
     Dates: start: 20150821, end: 20150821

REACTIONS (2)
  - Coma [Recovered/Resolved]
  - Electrocardiogram QT prolonged [Recovered/Resolved]

NARRATIVE: CASE EVENT DATE: 20150822
